FAERS Safety Report 5988396-0 (Version None)
Quarter: 2008Q4

REPORT INFORMATION
  Report Type: 
  Country: None (occurrence: None)
  Receive Date: 20081210
  Receipt Date: 20081202
  Transmission Date: 20090506
  Serious: Yes (Other)
  Sender: FDA-Public Use
  Company Number: JP-BAYER-200812632BYL

PATIENT
  Age: 60 Year
  Sex: Male
  Weight: 69 kg

DRUGS (4)
  1. NEXAVAR [Suspect]
     Indication: RENAL CELL CARCINOMA STAGE IV
     Dosage: TOTAL DAILY DOSE: 800 MG  UNIT DOSE: 200 MG
     Route: 048
     Dates: start: 20081015
  2. NEXAVAR [Suspect]
     Dosage: UNIT DOSE: 200 MG
     Route: 048
     Dates: start: 20081117
  3. RABEPRAZOLE SODIUM [Concomitant]
     Route: 048
     Dates: start: 20081020
  4. MAGNESIUM OXIDE [Concomitant]
     Route: 048
     Dates: start: 20081023

REACTIONS (5)
  - DRUG ERUPTION [None]
  - HEPATIC FUNCTION ABNORMAL [None]
  - HYPERTENSION [None]
  - PYREXIA [None]
  - RASH [None]
